FAERS Safety Report 9350522 (Version 1)
Quarter: 2013Q2

REPORT INFORMATION
  Report Type: Spontaneous
  Country: CN (occurrence: CN)
  Receive Date: 20130617
  Receipt Date: 20130617
  Transmission Date: 20140414
  Serious: Yes (Hospitalization)
  Sender: FDA-Public Use
  Company Number: CN-JNJFOC-20130602716

PATIENT
  Age: 62 Year
  Sex: Male
  Weight: 58 kg

DRUGS (4)
  1. TYLENOL COLD [Suspect]
     Indication: NASOPHARYNGITIS
     Route: 048
     Dates: start: 20120101, end: 20120101
  2. ASPERGILLUS ORYZAE ENZYME EXTRACT [Suspect]
     Indication: GASTRITIS
     Route: 048
     Dates: start: 20120101, end: 20120101
  3. PANCREATIN [Suspect]
     Indication: GASTRITIS
     Route: 048
     Dates: start: 20120101, end: 20120101
  4. TRADITIONAL CHINESE MEDICINE [Suspect]
     Indication: PRODUCT USED FOR UNKNOWN INDICATION
     Route: 048
     Dates: start: 20120101, end: 20120101

REACTIONS (6)
  - Urticaria [Recovering/Resolving]
  - Dizziness [Recovering/Resolving]
  - Chills [Recovering/Resolving]
  - Pyrexia [Recovering/Resolving]
  - Drug eruption [None]
  - Pruritus [None]
